FAERS Safety Report 8265831-9 (Version None)
Quarter: 2012Q2

REPORT INFORMATION
  Report Type: 
  Country: None (occurrence: None)
  Receive Date: 20120406
  Receipt Date: 20120403
  Transmission Date: 20120825
  Serious: Yes (Other)
  Sender: FDA-Public Use
  Company Number: US-TEVA-323803USA

PATIENT
  Sex: Female

DRUGS (3)
  1. ANTIBIOTICS [Concomitant]
     Indication: UPPER RESPIRATORY TRACT INFECTION
  2. CLARAVIS [Suspect]
     Dosage: 40 MILLIGRAM;
     Route: 048
     Dates: start: 20111108, end: 20120215
  3. YAZ [Concomitant]
     Indication: CONTRACEPTION
     Route: 048

REACTIONS (1)
  - UNINTENDED PREGNANCY [None]
